FAERS Safety Report 19779738 (Version 2)
Quarter: 2021Q4

REPORT INFORMATION
  Report Type: Spontaneous
  Country: CA (occurrence: None)
  Receive Date: 20210902
  Receipt Date: 20211103
  Transmission Date: 20220303
  Serious: Yes (Hospitalization, Other)
  Sender: FDA-Public Use
  Company Number: 2021A702842

PATIENT
  Age: 22172 Day
  Sex: Male
  Weight: 124.3 kg

DRUGS (4)
  1. DAPAGLIFLOZIN [Suspect]
     Active Substance: DAPAGLIFLOZIN
     Indication: Diabetes mellitus
     Route: 048
     Dates: start: 20171217
  2. LEVAMIR [Concomitant]
     Dosage: 50 UNITS SC IN THE MORNING AND 66 UNITS SC IN THE EVENING X 1 MONTH
  3. NOVORAPID [Concomitant]
     Active Substance: INSULIN ASPART
     Dosage: 50 UNITS WITH BREAKFAST 45 UNITS WITH LUNCH AND 55 UNITS WITH DINNER X 1 MONTH
  4. PERINDOPRIL [Concomitant]
     Active Substance: PERINDOPRIL
     Dosage: 8/1.25

REACTIONS (6)
  - Toe amputation [Recovering/Resolving]
  - Foot amputation [Unknown]
  - Ischaemic skin ulcer [Unknown]
  - Disease progression [Unknown]
  - Bone disorder [Unknown]
  - Infection [Unknown]

NARRATIVE: CASE EVENT DATE: 20180606
